FAERS Safety Report 8362850-9 (Version None)
Quarter: 2012Q2

REPORT INFORMATION
  Report Type: 
  Country: None (occurrence: None)
  Receive Date: 20120516
  Receipt Date: 20120515
  Transmission Date: 20120825
  Serious: Yes (Other)
  Sender: FDA-Public Use
  Company Number: PHHY2012NO041239

PATIENT
  Sex: Female

DRUGS (2)
  1. FEMARA [Suspect]
     Indication: BREAST CANCER
     Dosage: UNK
  2. TAMOXIFEN CITRATE [Concomitant]
     Dosage: UNK
     Dates: start: 20101001

REACTIONS (2)
  - SKIN HAEMORRHAGE [None]
  - CONJUNCTIVAL HAEMORRHAGE [None]
